FAERS Safety Report 10217896 (Version 1)
Quarter: 2014Q2

REPORT INFORMATION
  Report Type: Spontaneous
  Country: US (occurrence: US)
  Receive Date: 20140605
  Receipt Date: 20140605
  Transmission Date: 20141212
  Serious: No
  Sender: FDA-Public Use
  Company Number: US-009507513-1406USA001474

PATIENT
  Age: 37 Year
  Sex: Female

DRUGS (6)
  1. FUROSEMIDE [Suspect]
     Indication: PERIPARTUM CARDIOMYOPATHY
     Dosage: UNK
     Route: 048
  2. METHYLDOPA [Suspect]
     Indication: HYPERTENSION
     Dosage: 500 MG DAILY
     Route: 048
  3. METOPROLOL [Concomitant]
     Indication: PERIPARTUM CARDIOMYOPATHY
  4. ASPIRIN [Concomitant]
     Indication: PERIPARTUM CARDIOMYOPATHY
  5. CLOPIDOGREL [Concomitant]
     Indication: PERIPARTUM CARDIOMYOPATHY
  6. HYDROMORPHONE [Concomitant]
     Indication: PERIPARTUM CARDIOMYOPATHY

REACTIONS (1)
  - Exposure during pregnancy [Recovered/Resolved]
